FAERS Safety Report 4550772-0 (Version None)
Quarter: 2004Q4

REPORT INFORMATION
  Report Type: 
  Country: None (occurrence: None)
  Receive Date: 20041217
  Receipt Date: 20040916
  Transmission Date: 20050328
  Serious: No
  Sender: FDA-Public Use
  Company Number: 25004-BP-08393BP

PATIENT
  Sex: Male

DRUGS (5)
  1. SPIRIVA [Suspect]
     Indication: CHRONIC OBSTRUCTIVE AIRWAYS DISEASE
     Dosage: 18 MCG (18 MCG), IH
     Route: 055
     Dates: start: 20040716
  2. SPIRIVA [Suspect]
  3. ALBUTEROL [Concomitant]
  4. FLOVENT [Concomitant]
  5. CLARINEX (NARINE REPETABS) [Concomitant]

REACTIONS (3)
  - DYSPNOEA [None]
  - LUNG DISORDER [None]
  - SOMNOLENCE [None]
